FAERS Safety Report 10430441 (Version 3)
Quarter: 2015Q1

REPORT INFORMATION
  Report Type: Other
  Country: GB (occurrence: GB)
  Receive Date: 20140904
  Receipt Date: 20150324
  Transmission Date: 20150720
  Serious: Yes (Hospitalization, Other)
  Sender: FDA-Public Use
  Company Number: GB-MYLAN-2014M1002728

PATIENT

DRUGS (6)
  1. GEMCITABINE [Concomitant]
     Active Substance: GEMCITABINE\GEMCITABINE HYDROCHLORIDE
     Dosage: 1900 MG, UNK (DOSAGE FORM: UNSPECIFIED)
     Route: 065
     Dates: start: 20140724
  2. NICORANDIL [Interacting]
     Active Substance: NICORANDIL
     Dosage: 5 MG, QD (DOSAGE FORM: UNSPECIFIED)
     Route: 048
  3. CISPLATIN. [Concomitant]
     Active Substance: CISPLATIN
     Dosage: 134 MG, UNK (DOSAGE FORM: UNSPECIFIED)
     Route: 065
     Dates: start: 20140724
  4. TORISEL [Suspect]
     Active Substance: TEMSIROLIMUS
     Indication: PRODUCT USED FOR UNKNOWN INDICATION
     Dosage: 10 MG, UNK
     Route: 065
     Dates: start: 20140724
  5. AMLODIPINE [Suspect]
     Active Substance: AMLODIPINE BESYLATE
     Indication: PRODUCT USED FOR UNKNOWN INDICATION
     Dosage: 10 MG, QD (DOSAGE FORM: UNSPECIFIED)
     Route: 048
     Dates: start: 20140724
  6. DOMPERIDONE [Suspect]
     Active Substance: DOMPERIDONE
     Indication: PRODUCT USED FOR UNKNOWN INDICATION
     Dosage: 40 MG, QID
     Route: 048
     Dates: start: 20140724

REACTIONS (6)
  - Bradycardia [Unknown]
  - Drug interaction [Unknown]
  - Loss of consciousness [Unknown]
  - Syncope [Recovered/Resolved]
  - Hypotension [Unknown]
  - Incorrect dose administered [Unknown]

NARRATIVE: CASE EVENT DATE: 20140731
